FAERS Safety Report 7290104-0 (Version None)
Quarter: 2011Q1

REPORT INFORMATION
  Report Type: 
  Country: None (occurrence: None)
  Receive Date: 20110214
  Receipt Date: 20110131
  Transmission Date: 20110831
  Serious: Yes (Other)
  Sender: FDA-Public Use
  Company Number: US-CELGENEUS-163-20785-10082341

PATIENT
  Sex: Female
  Weight: 86.714 kg

DRUGS (17)
  1. THALOMID [Suspect]
     Route: 048
     Dates: start: 20100316, end: 20100429
  2. LISINOPRIL [Concomitant]
     Indication: HYPERTENSION
     Route: 065
  3. METFORMIN HYDROCHLORIDE [Concomitant]
     Route: 065
  4. MELPHALAN [Concomitant]
     Route: 065
     Dates: start: 20100316
  5. LEVOTHYROXINE SODIUM [Concomitant]
     Route: 048
  6. CHONDROITIN + MS [Concomitant]
     Route: 065
  7. FLEXAMIN [Concomitant]
     Route: 065
  8. PREDNISONE TAB [Concomitant]
     Route: 065
     Dates: start: 20100316
  9. MULTI-VITAMINS [Concomitant]
     Route: 065
  10. HYDROCORTISONE [Concomitant]
     Indication: RASH
     Route: 065
  11. VENLAFAXINE HCL EXTENDED-RELEASE [Concomitant]
     Route: 048
  12. ASPIRIN [Concomitant]
     Route: 065
  13. LISINOPRIL AND HYDROCHLOROTHIAZIDE [Concomitant]
     Dosage: 20/12.5MG
     Route: 065
  14. OXYCODONE HCL AND ACETAMINOPHEN [Concomitant]
     Indication: PAIN
     Dosage: 5/325
     Route: 065
  15. GLIPIZIDE [Concomitant]
     Route: 048
  16. DARBEPOETIN [Concomitant]
     Route: 065
  17. COUMADIN [Concomitant]
     Route: 065

REACTIONS (11)
  - FEMALE GENITAL TRACT FISTULA [None]
  - ANAEMIA [None]
  - POLLAKIURIA [None]
  - MYALGIA [None]
  - FATIGUE [None]
  - MICTURITION URGENCY [None]
  - URINARY INCONTINENCE [None]
  - EAR DISCOMFORT [None]
  - OEDEMA PERIPHERAL [None]
  - CARPAL TUNNEL SYNDROME [None]
  - NEUROPATHY PERIPHERAL [None]
